FAERS Safety Report 6300485-X (Version None)
Quarter: 2009Q3

REPORT INFORMATION
  Report Type: 
  Country: None (occurrence: None)
  Receive Date: 20090806
  Receipt Date: 20081120
  Transmission Date: 20100115
  Serious: No
  Sender: FDA-Public Use
  Company Number: US-ABBOTT-08P-163-0489004-00

PATIENT
  Sex: Female
  Weight: 68.1 kg

DRUGS (2)
  1. DEPAKOTE ER [Suspect]
     Indication: BIPOLAR DISORDER
     Dates: start: 20080401
  2. CLONIPINE [Concomitant]
     Indication: ANXIETY

REACTIONS (1)
  - ALOPECIA [None]
